FAERS Safety Report 11031033 (Version 3)
Quarter: 2015Q2

REPORT INFORMATION
  Report Type: Spontaneous
  Country: US (occurrence: US)
  Receive Date: 20150415
  Receipt Date: 20150630
  Transmission Date: 20150821
  Serious: Yes (Hospitalization, Other)
  Sender: FDA-Public Use
  Company Number: US-BAYER-2015-135753

PATIENT
  Age: 21 Year
  Sex: Female
  Weight: 124.72 kg

DRUGS (3)
  1. MIRENA [Suspect]
     Active Substance: LEVONORGESTREL
     Indication: MENORRHAGIA
  2. MIRENA [Suspect]
     Active Substance: LEVONORGESTREL
     Indication: CONTRACEPTION
     Dosage: 20 MCG/24HR, CONT
     Route: 015
     Dates: start: 20120314, end: 20121204
  3. CIPRO [Concomitant]
     Active Substance: CIPROFLOXACIN HYDROCHLORIDE
     Dosage: 500 MG, UNK
     Dates: start: 20121104

REACTIONS (10)
  - Injury [None]
  - Uterine perforation [None]
  - Pelvic inflammatory disease [None]
  - Anxiety [None]
  - Emotional distress [None]
  - Depression [None]
  - Device issue [None]
  - Self esteem decreased [None]
  - Pain [None]
  - Infertility female [None]

NARRATIVE: CASE EVENT DATE: 2012
